FAERS Safety Report 7078517-3 (Version None)
Quarter: 2010Q4

REPORT INFORMATION
  Report Type: 
  Country: None (occurrence: None)
  Receive Date: 20101101
  Receipt Date: 20101101
  Transmission Date: 20110411
  Serious: No
  Sender: FDA-Public Use
  Company Number: None

PATIENT
  Age: 34 Year
  Sex: Male
  Weight: 76.2043 kg

DRUGS (1)
  1. OXYCONTIN [Suspect]
     Indication: PAIN
     Dosage: 60MG 3X DAILY PO
     Route: 048
     Dates: start: 20070101, end: 20100929

REACTIONS (7)
  - ADVERSE EVENT [None]
  - DRUG INEFFECTIVE [None]
  - HEADACHE [None]
  - NAUSEA [None]
  - PAIN [None]
  - PRODUCT FORMULATION ISSUE [None]
  - SOMNOLENCE [None]
